FAERS Safety Report 6076530-6 (Version None)
Quarter: 2009Q1

REPORT INFORMATION
  Report Type: 
  Country: None (occurrence: None)
  Receive Date: 20090209
  Receipt Date: 20090127
  Transmission Date: 20090719
  Serious: Yes (Hospitalization)
  Sender: FDA-Public Use
  Company Number: 1000003834

PATIENT
  Age: 64 Year
  Sex: Male

DRUGS (8)
  1. ESCITALOPRAM [Suspect]
     Indication: DEPRESSION
     Dosage: 20 MG (20 MG, 1 IN 1 D), ORAL
     Route: 048
     Dates: start: 20081209, end: 20081216
  2. DORMICUM (TABLETS) [Suspect]
     Indication: SLEEP DISORDER THERAPY
     Dosage: 7.5 MG (7.5 MG, 1 IN 1 D), ORAL
     Route: 048
     Dates: start: 20081211, end: 20081213
  3. MST 60 CONTINUS (TABLETS) [Suspect]
     Indication: ANALGESIA
     Dosage: 60 (60 ,1 IN 1 D) ,ORAL
     Route: 048
     Dates: start: 20081209, end: 20081213
  4. ATROVENT [Suspect]
     Indication: PNEUMONIA
     Dosage: RESPIRATORY (INHALATION)
     Route: 055
     Dates: start: 20080101
  5. DUROGESIC MATRIX (POULTICE OR PATCH) [Suspect]
     Indication: ANALGESIA
     Dosage: (75 MCG) ,TRANSDERMAL
     Route: 062
     Dates: start: 20081208, end: 20081216
  6. TRANSTEC (POULTICE OR PATCH) [Suspect]
     Dosage: (35 MCG) ,TRANSDERMAL
     Route: 062
     Dates: start: 20081101, end: 20081208
  7. PRIMPERAN TAB [Suspect]
     Dates: start: 20080101
  8. ENANTYUM [Suspect]
     Indication: ANALGESIA
     Dosage: 25 MG
     Dates: start: 20081212, end: 20081216

REACTIONS (4)
  - DISORIENTATION [None]
  - HEPATIC ENCEPHALOPATHY [None]
  - HEPATITIS FULMINANT [None]
  - SLEEP DISORDER [None]
